FAERS Safety Report 22217823 (Version 1)
Quarter: 2023Q2

REPORT INFORMATION
  Report Type: Spontaneous
  Country: FR (occurrence: FR)
  Receive Date: 20230417
  Receipt Date: 20230417
  Transmission Date: 20230722
  Serious: Yes (Hospitalization)
  Sender: FDA-Public Use
  Company Number: None

PATIENT
  Age: 75 Year
  Sex: Male
  Weight: 78 kg

DRUGS (9)
  1. ROSUVASTATIN CALCIUM [Suspect]
     Active Substance: ROSUVASTATIN CALCIUM
     Indication: Hypercholesterolaemia
     Dates: start: 20221215, end: 20230131
  2. FLUTICASONE FUROATE [Concomitant]
     Active Substance: FLUTICASONE FUROATE
     Dosage: STRENGTH: 27.5 MICROGRAMS/SPRAY, SUSPENSION FOR NASAL SPRAY
  3. Beclometasone, Formoterol [Concomitant]
     Dosage: STRENGTH: 200/6 MICROGRAMS/DOSE, SOLUTION FOR INHALATION IN PRESSURIZED?BOTTLE
  4. DUTASTERIDE [Concomitant]
     Active Substance: DUTASTERIDE
  5. ELIQUIS [Concomitant]
     Active Substance: APIXABAN
     Dosage: STRENGTH: 5 MG
  6. TERAZOSIN HYDROCHLORIDE [Concomitant]
     Active Substance: TERAZOSIN HYDROCHLORIDE
  7. Temesta [Concomitant]
     Dosage: STRENGTH: 1 MG, SCORED TABLET
  8. UMECLIDINIUM BROMIDE\VILANTEROL TRIFENATATE [Concomitant]
     Active Substance: UMECLIDINIUM BROMIDE\VILANTEROL TRIFENATATE
     Dosage: STRENGTH: 55 MICROGRAMS/22 MICROGRAMS, POWDER FOR INHALATION IN A SINGLE-DOSE CONTAINER
  9. VENTOLIN [Concomitant]
     Active Substance: ALBUTEROL SULFATE
     Dosage: STRENGTH: 100 MICROGRAMS PER DOSE, SUSPENSION FOR INHALATION IN A?PRESSURIZED BOTTLE

REACTIONS (1)
  - Autoimmune haemolytic anaemia [Recovered/Resolved]

NARRATIVE: CASE EVENT DATE: 20230131
